FAERS Safety Report 7653497-8 (Version None)
Quarter: 2011Q3

REPORT INFORMATION
  Report Type: 
  Country: None (occurrence: None)
  Receive Date: 20110803
  Receipt Date: 20110727
  Transmission Date: 20111222
  Serious: Yes (Death, Other)
  Sender: FDA-Public Use
  Company Number: US-BAYER-200934878NA

PATIENT
  Age: 81 Year
  Sex: Female
  Weight: 63 kg

DRUGS (31)
  1. METOPROLOL TARTRATE [Concomitant]
     Dosage: UNK
     Route: 042
     Dates: start: 20070328
  2. AMIODARONE HCL [Concomitant]
     Dosage: UNK
     Route: 042
     Dates: start: 20070328, end: 20070328
  3. ESMOLOL [Concomitant]
     Dosage: UNK
     Route: 042
     Dates: start: 20070328
  4. LASIX [Concomitant]
     Dosage: 40 MG, BID
     Route: 048
  5. LASIX [Concomitant]
     Dosage: UNK
     Route: 042
     Dates: start: 20070328
  6. LIPITOR [Concomitant]
     Dosage: 40 MG, BID
     Route: 048
  7. METOPROLOL TARTRATE [Concomitant]
     Dosage: 25 MG, QD
     Route: 048
  8. DOPAMINE HCL [Concomitant]
     Dosage: 400 MG, UNK
     Route: 042
     Dates: start: 20070328, end: 20070328
  9. PROTAMINE [Concomitant]
     Dosage: 300 MG, UNK
     Route: 042
     Dates: start: 20070328
  10. RED BLOOD CELLS [Concomitant]
     Dosage: UNK
     Dates: start: 20070328
  11. ZANTAC [Concomitant]
     Dosage: UNK
     Route: 042
     Dates: start: 20070328
  12. VERSED [Concomitant]
     Dosage: UNK
     Route: 042
     Dates: start: 20070328
  13. NITROGLYCERIN [Concomitant]
     Dosage: UNK
     Route: 042
     Dates: start: 20070328
  14. TRASYLOL [Suspect]
     Indication: AORTIC VALVE REPLACEMENT
     Dosage: 200ML LOADING DOSE
     Route: 042
     Dates: start: 20070328, end: 20070328
  15. CAPTOPRIL [Concomitant]
     Dosage: 12.5 MG, TID
     Route: 048
  16. METFORMIN HCL [Concomitant]
     Dosage: 500 MG, BID
     Route: 048
  17. GLIPIZIDE [Concomitant]
     Dosage: 2.5 MG, QD
     Route: 048
  18. COUMADIN [Concomitant]
     Dosage: 5 MG EVERY OTHER DAY
     Route: 048
  19. NITROGLYCERIN [Concomitant]
     Dosage: 0.4 MG, PRN
     Route: 060
  20. FORANE [Concomitant]
     Dosage: UNK
     Dates: start: 20070328, end: 20070328
  21. TRASYLOL [Suspect]
     Indication: CORONARY ARTERY BYPASS
     Dosage: 1 ML
     Route: 042
     Dates: start: 20070328, end: 20070328
  22. DIGOXIN [Concomitant]
     Dosage: 0.125 MG, QD
     Route: 048
  23. PAVULON [Concomitant]
     Dosage: UNK
     Route: 042
     Dates: start: 20070328
  24. EPINEPHRINE [Concomitant]
     Dosage: 2 MEQ, UNK
     Route: 042
     Dates: start: 20070328, end: 20070328
  25. INSULIN [Concomitant]
     Dosage: UNK
     Route: 042
     Dates: start: 20070328
  26. TRASYLOL [Suspect]
     Indication: COX-MAZE PROCEDURE
     Dosage: 50ML/HR
     Route: 042
     Dates: start: 20070328, end: 20070328
  27. ZAROXOLYN [Concomitant]
     Dosage: 2.5 MG, QD
     Route: 048
  28. ACETYLSALICYLIC ACID SRT [Concomitant]
     Dosage: 81 MG, QD
     Route: 048
  29. HEPARIN [Concomitant]
     Dosage: 30000 U, UNK
     Route: 042
     Dates: start: 20070328
  30. PLATELETS [Concomitant]
  31. DECADRON [Concomitant]
     Dosage: UNK
     Route: 042
     Dates: start: 20070328

REACTIONS (12)
  - ANXIETY [None]
  - FEAR [None]
  - PAIN [None]
  - RENAL IMPAIRMENT [None]
  - INJURY [None]
  - DEATH [None]
  - STRESS [None]
  - RENAL INJURY [None]
  - RENAL FAILURE [None]
  - EMOTIONAL DISTRESS [None]
  - MULTI-ORGAN FAILURE [None]
  - UNEVALUABLE EVENT [None]
